FAERS Safety Report 25185933 (Version 1)
Quarter: 2025Q2

REPORT INFORMATION
  Report Type: Other
  Country: US (occurrence: US)
  Receive Date: 20250410
  Receipt Date: 20250410
  Transmission Date: 20250716
  Serious: Yes (Life-Threatening, Hospitalization, Other)
  Sender: B BRAUN
  Company Number: US-B.Braun Medical Inc.-2174648

PATIENT
  Age: 36 Year
  Sex: Female

DRUGS (2)
  1. DEXTROSE\LIDOCAINE HYDROCHLORIDE [Suspect]
     Active Substance: DEXTROSE\LIDOCAINE HYDROCHLORIDE
     Indication: Induction of anaesthesia
  2. CLOMIPRAMINE [Interacting]
     Active Substance: CLOMIPRAMINE

REACTIONS (1)
  - Seizure [Unknown]
